FAERS Safety Report 18687737 (Version 1)
Quarter: 2020Q4

REPORT INFORMATION
  Report Type: Spontaneous
  Country: US (occurrence: US)
  Receive Date: 20201231
  Receipt Date: 20201231
  Transmission Date: 20210114
  Serious: Yes (Other)
  Sender: FDA-Public Use
  Company Number: US-ALEMBIC PHARMACUETICALS LIMITED-2020SCAL000515

PATIENT

DRUGS (1)
  1. DOXYCYCLINE. [Suspect]
     Active Substance: DOXYCYCLINE
     Indication: INFECTION
     Dosage: 100 MILLIGRAM, BID

REACTIONS (6)
  - Gastrointestinal injury [Unknown]
  - Necrosis of artery [Unknown]
  - Iron deficiency anaemia [Unknown]
  - Reactive gastropathy [Unknown]
  - Gastric ulcer [None]
  - Gastric mucosal lesion [Unknown]
